FAERS Safety Report 16057996 (Version 2)
Quarter: 2019Q2

REPORT INFORMATION
  Report Type: Report from Study
  Country: GB (occurrence: GB)
  Receive Date: 20190311
  Receipt Date: 20190401
  Transmission Date: 20190711
  Serious: Yes (Hospitalization)
  Sender: FDA-Public Use
  Company Number: PHHY2019GB025359

PATIENT
  Age: 65 Year
  Sex: Female

DRUGS (1)
  1. SANDOSTATIN LAR DEPOT [Suspect]
     Active Substance: OCTREOTIDE ACETATE
     Indication: NEUROENDOCRINE TUMOUR
     Dosage: 30 MG, QMO (4 WEEKLY)
     Route: 030
     Dates: start: 201807

REACTIONS (4)
  - Supraventricular tachycardia [Unknown]
  - Dyspnoea [Unknown]
  - Heart rate increased [Unknown]
  - Asthma [Unknown]

NARRATIVE: CASE EVENT DATE: 20190116
